FAERS Safety Report 9242101 (Version 2)
Quarter: 2013Q2

REPORT INFORMATION
  Report Type: Spontaneous
  Country: AU (occurrence: AU)
  Receive Date: 20130419
  Receipt Date: 20130507
  Transmission Date: 20140414
  Serious: Yes (Other)
  Sender: FDA-Public Use
  Company Number: AU-009507513-1304AUS010058

PATIENT
  Age: 81 Year
  Sex: Male

DRUGS (1)
  1. AVANZA [Suspect]
     Dosage: UNK
     Route: 048
     Dates: end: 20130215

REACTIONS (7)
  - Surgery [Unknown]
  - Aphagia [Unknown]
  - Withdrawal syndrome [Unknown]
  - Insomnia [Unknown]
  - Hypoaesthesia [Unknown]
  - Tremor [Unknown]
  - Agitation [Unknown]
